FAERS Safety Report 21573719 (Version 1)
Quarter: 2022Q4

REPORT INFORMATION
  Report Type: Report from Study
  Country: US (occurrence: US)
  Receive Date: 20221109
  Receipt Date: 20221109
  Transmission Date: 20230113
  Serious: Yes (Other)
  Sender: FDA-Public Use
  Company Number: US-UCBSA-2022054196

PATIENT
  Age: 7 Year
  Sex: Male

DRUGS (2)
  1. FINTEPLA [Suspect]
     Active Substance: FENFLURAMINE
     Indication: Product used for unknown indication
     Dosage: 5.5ML QAM AND 6ML QHS
  2. FINTEPLA [Suspect]
     Active Substance: FENFLURAMINE
     Dosage: 5.5ML QAM AND 6ML QHS

REACTIONS (5)
  - Aggression [Recovered/Resolved]
  - Decreased appetite [Not Recovered/Not Resolved]
  - Weight decreased [Not Recovered/Not Resolved]
  - Anger [Recovered/Resolved]
  - Product use issue [Unknown]

NARRATIVE: CASE EVENT DATE: 20221104
